FAERS Safety Report 12256058 (Version 1)
Quarter: 2016Q2

REPORT INFORMATION
  Report Type: Spontaneous
  Country: None (occurrence: None)
  Receive Date: 20160411
  Receipt Date: 20160411
  Transmission Date: 20160815
  Serious: No
  Sender: FDA-Public Use
  Company Number: None

PATIENT
  Age: 78 Year
  Sex: Female

DRUGS (1)
  1. INTRON A [Suspect]
     Active Substance: INTERFERON ALFA-2B
     Indication: MYCOSIS FUNGOIDES
     Dosage: INTRON-A INJ 18MU 2.7MU 3 TIM SUBCUTANEOUSLY
     Route: 058

REACTIONS (2)
  - Injection site infection [None]
  - Injection site reaction [None]

NARRATIVE: CASE EVENT DATE: 20160409
